FAERS Safety Report 10757192 (Version 1)
Quarter: 2015Q1

REPORT INFORMATION
  Report Type: Spontaneous
  Country: MX (occurrence: None)
  Receive Date: 20150130
  Receipt Date: 20150130
  Transmission Date: 20150721
  Serious: Yes (Death, Hospitalization, Other)
  Sender: FDA-Public Use
  Company Number: MX2015GSK010456

PATIENT
  Age: 55 Year
  Sex: Male

DRUGS (5)
  1. ATAZANAVIR (ATAZANAVIR) [Suspect]
     Active Substance: ATAZANAVIR
     Indication: HIV INFECTION
  2. ABACAVIR [Suspect]
     Active Substance: ABACAVIR
     Indication: HIV INFECTION
  3. TENOFOVIR (TENOFOVIR) UNKNOWN [Suspect]
     Active Substance: TENOFOVIR
     Indication: HIV INFECTION
  4. EMTRICITABINE (EMTRICITABINE) UNKNOWN [Suspect]
     Active Substance: EMTRICITABINE
     Indication: HIV INFECTION
  5. RITONAVIR (RITONAVIR) [Suspect]
     Active Substance: RITONAVIR
     Indication: HIV INFECTION

REACTIONS (19)
  - Cholelithiasis [None]
  - Brain stem syndrome [None]
  - Diarrhoea [None]
  - Hemiparesis [None]
  - Generalised tonic-clonic seizure [None]
  - Pleural effusion [None]
  - Progressive multifocal leukoencephalopathy [None]
  - Hepatosplenomegaly [None]
  - Mycobacterium avium complex infection [None]
  - Productive cough [None]
  - Lipids increased [None]
  - Pupillary reflex impaired [None]
  - Demyelination [None]
  - Immune reconstitution inflammatory syndrome [None]
  - Abdominal pain [None]
  - Bronchiectasis [None]
  - Anosognosia [None]
  - Apraxia [None]
  - Respiratory failure [None]
